FAERS Safety Report 5245311-5 (Version None)
Quarter: 2007Q1

REPORT INFORMATION
  Report Type: 
  Country: None (occurrence: None)
  Receive Date: 20070223
  Receipt Date: 20070221
  Transmission Date: 20070707
  Serious: Yes (Other)
  Sender: FDA-Public Use
  Company Number: JP-JPN-A200700319

PATIENT
  Age: 0 Day

DRUGS (4)
  1. PAXIL [Suspect]
     Indication: DEPRESSION
     Dates: start: 20050414, end: 20061026
  2. NORITREN [Concomitant]
     Indication: DEPRESSION
  3. CONSTAN [Concomitant]
     Indication: DRUG USE FOR UNKNOWN INDICATION
  4. LEXOTAN [Concomitant]
     Indication: DRUG USE FOR UNKNOWN INDICATION

REACTIONS (2)
  - DRUG EXPOSURE DURING PREGNANCY [None]
  - JAUNDICE [None]
